FAERS Safety Report 7252018-1 (Version None)
Quarter: 2011Q1

REPORT INFORMATION
  Report Type: 
  Country: None (occurrence: None)
  Receive Date: 20110128
  Receipt Date: 20100111
  Transmission Date: 20110831
  Serious: No
  Sender: FDA-Public Use
  Company Number: US-ABBOTT-10P-163-0619068-00

PATIENT
  Sex: Female
  Weight: 83.99 kg

DRUGS (2)
  1. HUMIRA [Suspect]
     Indication: RHEUMATOID ARTHRITIS
     Dates: start: 20040601, end: 20091201
  2. HUMIRA [Suspect]
     Dates: start: 20100101

REACTIONS (3)
  - KIDNEY INFECTION [None]
  - RASH [None]
  - PULMONARY FIBROSIS [None]
